FAERS Safety Report 9991196 (Version 1)
Quarter: 2014Q1

REPORT INFORMATION
  Report Type: Report from Study
  Country: US (occurrence: US)
  Receive Date: 20140310
  Receipt Date: 20140310
  Transmission Date: 20141002
  Serious: No
  Sender: FDA-Public Use
  Company Number: US-ABBVIE-13P-163-1132517-00

PATIENT
  Age: 10 Year
  Sex: Female
  Weight: 40.86 kg

DRUGS (5)
  1. HUMIRA [Suspect]
     Indication: UVEITIS
     Route: 058
     Dates: start: 201307
  2. HUMIRA [Suspect]
     Dates: start: 201308
  3. METHOTREXATE [Concomitant]
     Indication: UVEITIS
  4. PREDNISONE [Concomitant]
     Indication: UVEITIS
  5. UNKNOWN EYE DROPS [Concomitant]
     Indication: UVEITIS

REACTIONS (2)
  - Drug administered at inappropriate site [Unknown]
  - Off label use [Not Recovered/Not Resolved]
